FAERS Safety Report 24907504 (Version 1)
Quarter: 2025Q1

REPORT INFORMATION
  Report Type: Spontaneous
  Country: NL (occurrence: NL)
  Receive Date: 20250131
  Receipt Date: 20250131
  Transmission Date: 20250408
  Serious: Yes (Other)
  Sender: AUROBINDO
  Company Number: NL-LRB-01028857

PATIENT
  Age: 62 Year
  Sex: Male
  Weight: 73 kg

DRUGS (3)
  1. LOSARTAN [Suspect]
     Active Substance: LOSARTAN
     Indication: Hypertension
     Dosage: 50 MILLIGRAM, ONCE A DAY (1 X DAY 1 PIECE)
     Route: 048
     Dates: start: 20250101
  2. ASPIRIN [Concomitant]
     Active Substance: ASPIRIN
     Indication: Product used for unknown indication
     Route: 065
  3. ALLOPURINOL [Concomitant]
     Active Substance: ALLOPURINOL
     Indication: Product used for unknown indication
     Route: 065

REACTIONS (3)
  - Erectile dysfunction [Unknown]
  - Chillblains [Recovering/Resolving]
  - Peripheral coldness [Recovering/Resolving]
